FAERS Safety Report 9386927 (Version 1)
Quarter: 2013Q3

REPORT INFORMATION
  Report Type: Spontaneous
  Country: US (occurrence: None)
  Receive Date: 20130703
  Receipt Date: 20130703
  Transmission Date: 20140515
  Serious: No
  Sender: FDA-Public Use
  Company Number: None

PATIENT
  Age: 48 Year
  Sex: Female
  Weight: 70.31 kg

DRUGS (1)
  1. TC3000 [Suspect]
     Indication: SPIDER VEIN
     Dosage: TC3000 DEVICE TO TREAT SPIDER VEINS. THIS DEVICE IS FDA APPROVED UNDER THE 510K NUMBER K083352

REACTIONS (2)
  - Skin haemorrhage [None]
  - Device issue [None]
